FAERS Safety Report 7656718-0 (Version None)
Quarter: 2011Q3

REPORT INFORMATION
  Report Type: 
  Country: None (occurrence: None)
  Receive Date: 20110801
  Receipt Date: 20110725
  Transmission Date: 20111222
  Serious: Yes (Life-Threatening, Disabling)
  Sender: FDA-Public Use
  Company Number: 2011SP034813

PATIENT
  Age: 66 Year
  Sex: Female

DRUGS (5)
  1. VENTOLIN HFA [Concomitant]
  2. DULERA ORAL INHALATION [Suspect]
     Indication: ASTHMA
     Dates: start: 20110708
  3. DULERA ORAL INHALATION [Suspect]
     Indication: EMPHYSEMA
     Dates: start: 20110708
  4. SINGULAIR [Concomitant]
  5. SPIRIVA [Concomitant]

REACTIONS (4)
  - DYSPNOEA [None]
  - DRUG INEFFECTIVE [None]
  - DISABILITY [None]
  - GENERAL PHYSICAL HEALTH DETERIORATION [None]
